FAERS Safety Report 10911816 (Version 1)
Quarter: 2015Q1

REPORT INFORMATION
  Report Type: Spontaneous
  Country: US (occurrence: None)
  Receive Date: 20150309
  Receipt Date: 20150309
  Transmission Date: 20150721
  Serious: Yes (Other)
  Sender: FDA-Public Use
  Company Number: 2013P1020316

PATIENT
  Age: 51 Year
  Sex: Female
  Weight: 81.65 kg

DRUGS (9)
  1. PREDNISONE. [Suspect]
     Active Substance: PREDNISONE
     Indication: PNEUMONIA
     Dosage: 10 MG (10 MG, 1 IN 1 D), UNKNOWN
     Dates: start: 20110419, end: 20110423
  2. PREDNISONE. [Suspect]
     Active Substance: PREDNISONE
     Indication: DYSPNOEA
     Dosage: 10 MG (10 MG, 1 IN 1 D), UNKNOWN
     Dates: start: 20110419, end: 20110423
  3. ATENOLOL. [Suspect]
     Active Substance: ATENOLOL
  4. GENERIC ZOLOFT (SERTRALINE HYDROCHLORIDE) [Concomitant]
  5. PREDNISONE. [Suspect]
     Active Substance: PREDNISONE
     Indication: PNEUMONIA
     Dosage: 40 MG (20 MG, 2 IN 1 D), ORAL
     Route: 048
     Dates: start: 20110407, end: 20110412
  6. LEVAQUIN [Suspect]
     Active Substance: LEVOFLOXACIN
     Indication: PNEUMONIA
     Dosage: (750 MG), UNKNOWN?
     Dates: start: 201104
  7. XANAX [Concomitant]
     Active Substance: ALPRAZOLAM
  8. PREDNISONE. [Suspect]
     Active Substance: PREDNISONE
     Indication: DYSPNOEA
     Dosage: 40 MG (20 MG, 2 IN 1 D), ORAL
     Route: 048
     Dates: start: 20110407, end: 20110412
  9. AMBIEN [Concomitant]
     Active Substance: ZOLPIDEM TARTRATE

REACTIONS (17)
  - Joint swelling [None]
  - Musculoskeletal pain [None]
  - Muscular weakness [None]
  - Burning sensation [None]
  - Dysstasia [None]
  - Arthritis [None]
  - Fatigue [None]
  - Inflammation [None]
  - Impaired work ability [None]
  - Peripheral swelling [None]
  - Tearfulness [None]
  - Arthralgia [None]
  - Gait disturbance [None]
  - Fibromyalgia [None]
  - Pain in extremity [None]
  - Skin discolouration [None]
  - Contusion [None]

NARRATIVE: CASE EVENT DATE: 20110419
